FAERS Safety Report 12667770 (Version 1)
Quarter: 2016Q3

REPORT INFORMATION
  Report Type: Spontaneous
  Country: US (occurrence: US)
  Receive Date: 20160819
  Receipt Date: 20160819
  Transmission Date: 20161109
  Serious: No
  Sender: FDA-Public Use
  Company Number: US-ACTAVIS-2016-15874

PATIENT
  Sex: Female

DRUGS (1)
  1. MIXED SALTS AMPHETAMINE (AELLC) [Suspect]
     Active Substance: AMPHETAMINE ASPARTATE\AMPHETAMINE SULFATE\DEXTROAMPHETAMINE SACCHARATE\DEXTROAMPHETAMINE SULFATE
     Indication: PRODUCT USED FOR UNKNOWN INDICATION
     Dosage: 30 MG, UNKNOWN
     Route: 065

REACTIONS (5)
  - Palpitations [Unknown]
  - Headache [Unknown]
  - Joint stiffness [Unknown]
  - Drug effect variable [Unknown]
  - Insomnia [Unknown]
